FAERS Safety Report 20940638 (Version 1)
Quarter: 2022Q2

REPORT INFORMATION
  Report Type: Report from Study
  Country: IL (occurrence: IL)
  Receive Date: 20220609
  Receipt Date: 20220609
  Transmission Date: 20220721
  Serious: Yes (Hospitalization)
  Sender: FDA-Public Use
  Company Number: IL-ABBVIE-22P-082-4419893-00

PATIENT
  Age: 82 Year
  Sex: Male
  Weight: 70 kg

DRUGS (10)
  1. LEMZOPARLIMAB [Suspect]
     Active Substance: LEMZOPARLIMAB
     Indication: Acute myeloid leukaemia
     Route: 042
     Dates: start: 20220102
  2. VENETOCLAX [Suspect]
     Active Substance: VENETOCLAX
     Indication: Acute myeloid leukaemia
     Route: 048
     Dates: start: 20211226, end: 20220304
  3. VENETOCLAX [Suspect]
     Active Substance: VENETOCLAX
     Route: 048
     Dates: start: 20220306
  4. AZACITIDINE [Suspect]
     Active Substance: AZACITIDINE
     Indication: Acute myeloid leukaemia
     Dosage: 7 DAYS WITHIN THE FIRST 9 CALENDAR DAYS OF EACH 28-DAY CYCLE
     Route: 058
     Dates: start: 20211226
  5. CALCIUM [Concomitant]
     Active Substance: CALCIUM
     Indication: Osteoporosis prophylaxis
     Route: 048
     Dates: start: 2010
  6. VITAMIN D [Concomitant]
     Active Substance: VITAMIN D NOS
     Indication: Osteoporosis prophylaxis
     Route: 048
     Dates: start: 2010
  7. ATORVASTATIN [Concomitant]
     Active Substance: ATORVASTATIN
     Indication: Dyslipidaemia
     Route: 048
     Dates: start: 201010
  8. FOLIC ACID [Concomitant]
     Active Substance: FOLIC ACID
     Indication: Acute myeloid leukaemia
     Route: 048
     Dates: start: 2020
  9. AMIODARONE HYDROCHLORIDE [Concomitant]
     Active Substance: AMIODARONE HYDROCHLORIDE
     Indication: Arrhythmia
     Route: 048
     Dates: start: 2016
  10. ESOMEPRAZOLE [Concomitant]
     Active Substance: ESOMEPRAZOLE
     Indication: Antacid therapy
     Route: 048
     Dates: start: 2015

REACTIONS (1)
  - Lower respiratory tract infection [Recovered/Resolved]

NARRATIVE: CASE EVENT DATE: 20220304
